FAERS Safety Report 23193772 (Version 1)
Quarter: 2023Q4

REPORT INFORMATION
  Report Type: Spontaneous
  Country: CN (occurrence: CN)
  Receive Date: 20231116
  Receipt Date: 20231116
  Transmission Date: 20240110
  Serious: Yes (Other)
  Sender: FDA-Public Use
  Company Number: CN-BEIGENE-BGN-2023-013510

PATIENT

DRUGS (5)
  1. BRUKINSA [Suspect]
     Active Substance: ZANUBRUTINIB
     Indication: Waldenstrom^s macroglobulinaemia
     Dosage: 80 MILLIGRAM, BID
     Route: 048
     Dates: start: 20230509, end: 20230516
  2. ALLOPURINOL [Concomitant]
     Active Substance: ALLOPURINOL
     Indication: Hyperuricaemia
     Dosage: 0.25 GRAM, QD
     Route: 048
     Dates: start: 20230510, end: 20230516
  3. ROSUVASTATIN CALCIUM [Concomitant]
     Active Substance: ROSUVASTATIN CALCIUM
     Indication: Lipids increased
     Dosage: 10 MILLIGRAM, QD
     Route: 048
     Dates: start: 20230509, end: 20230516
  4. Wen xin [Concomitant]
     Indication: Asthenia
     Dosage: 1 DOSAGE FORM, TID
     Route: 048
     Dates: start: 20230506, end: 20230516
  5. AI DI [Concomitant]
     Indication: Neoplasm malignant
     Dosage: 50 MILLILITER, QD
     Route: 041
     Dates: start: 20230509, end: 20230516

REACTIONS (4)
  - Coagulopathy [Recovering/Resolving]
  - Peripheral artery occlusion [Unknown]
  - Musculoskeletal pain [Recovering/Resolving]
  - Furuncle [Unknown]

NARRATIVE: CASE EVENT DATE: 20230514
